FAERS Safety Report 23019956 (Version 1)
Quarter: 2023Q4

REPORT INFORMATION
  Report Type: Spontaneous
  Country: FR (occurrence: FR)
  Receive Date: 20231003
  Receipt Date: 20231003
  Transmission Date: 20240110
  Serious: Yes (Hospitalization, Disabling, Other)
  Sender: FDA-Public Use
  Company Number: FR-LUNDBECK-DKLU3068276

PATIENT
  Age: 39 Year
  Sex: Male

DRUGS (2)
  1. BRINTELLIX [Suspect]
     Active Substance: VORTIOXETINE HYDROBROMIDE
     Indication: Adjustment disorder with depressed mood
     Dosage: 10 MILLIGRAM, QD
     Route: 065
     Dates: start: 20170502
  2. LORAZEPAM [Concomitant]
     Active Substance: LORAZEPAM
     Indication: Adjustment disorder with depressed mood
     Dosage: UNK
     Route: 065

REACTIONS (6)
  - Suicide attempt [Unknown]
  - Social avoidant behaviour [Unknown]
  - Negative thoughts [Unknown]
  - Nightmare [Unknown]
  - Feeling of despair [Unknown]
  - Discomfort [Unknown]

NARRATIVE: CASE EVENT DATE: 20170507
